FAERS Safety Report 14785801 (Version 3)
Quarter: 2018Q2

REPORT INFORMATION
  Report Type: Report from Study
  Country: None (occurrence: JP)
  Receive Date: 20180420
  Receipt Date: 20180521
  Transmission Date: 20180711
  Serious: Yes (Hospitalization)
  Sender: FDA-Public Use
  Company Number: JP-ABBVIE-18P-087-2308933-00

PATIENT
  Age: 75 Year
  Sex: Female
  Weight: 36.6 kg

DRUGS (19)
  1. AMLODIPINE BESILATE [Concomitant]
     Active Substance: AMLODIPINE BESYLATE
     Indication: HYPERTENSION
     Route: 048
     Dates: start: 20110808
  2. PATANOL OPHTHALMIC SOLUTION [Concomitant]
     Indication: CONJUNCTIVITIS ALLERGIC
     Route: 047
     Dates: start: 20170415
  3. TAKECAB [Concomitant]
     Active Substance: VONOPRAZAN FUMURATE
     Indication: GASTRITIS PROPHYLAXIS
     Route: 048
     Dates: start: 20180207
  4. VENETOCLAX. [Suspect]
     Active Substance: VENETOCLAX
     Indication: HAEMATOLOGICAL MALIGNANCY
     Route: 048
     Dates: start: 20170620, end: 20170620
  5. TERPERAN [Concomitant]
     Active Substance: METOCLOPRAMIDE HYDROCHLORIDE
     Indication: PROPHYLAXIS OF NAUSEA AND VOMITING
     Route: 048
     Dates: start: 20170715
  6. BRONUCK OPHTHALMIC SOLUTION [Concomitant]
     Indication: CONJUNCTIVITIS ALLERGIC
     Route: 047
     Dates: start: 20170720
  7. NASONEX [Concomitant]
     Active Substance: MOMETASONE FUROATE
     Indication: RHINITIS ALLERGIC
     Route: 045
     Dates: start: 20171227
  8. VENETOCLAX. [Suspect]
     Active Substance: VENETOCLAX
     Route: 048
     Dates: start: 20180514
  9. MINODRONIC ACID HYDRATE [Concomitant]
     Active Substance: MINODRONIC ACID
     Indication: OSTEOPOROSIS
     Route: 048
     Dates: start: 20120901
  10. SODIUM GUALENATE HYDRATE [Concomitant]
     Active Substance: SODIUM GUALENATE MONOHYDRATE
     Indication: INFECTION PROPHYLAXIS
     Dosage: OPTIMAL DOSE, GARGLE
     Dates: start: 20170604
  11. AZACITIDINE. [Suspect]
     Active Substance: AZACITIDINE
     Indication: HAEMATOLOGICAL MALIGNANCY
     Dosage: DAYS 1 - 7 OF EACH 28 DAY CYCLE
     Route: 042
     Dates: start: 20170619
  12. SHAKUYAKUKANZOTO [Concomitant]
     Active Substance: HERBALS
     Indication: MUSCLE SPASMS
     Route: 048
     Dates: start: 20180207
  13. VENETOCLAX. [Suspect]
     Active Substance: VENETOCLAX
     Route: 048
     Dates: start: 20170622, end: 20170622
  14. MAGNESIUM OXIDE. [Concomitant]
     Active Substance: MAGNESIUM OXIDE
     Indication: CONSTIPATION PROPHYLAXIS
     Route: 048
     Dates: start: 20170625
  15. HYALEIN OPHTHALMIC SOLUTION [Concomitant]
     Indication: DRY EYE
     Route: 047
     Dates: start: 20170415
  16. VENETOCLAX. [Suspect]
     Active Substance: VENETOCLAX
     Route: 048
     Dates: start: 20170623, end: 20180401
  17. ALFACALCIDOL [Concomitant]
     Active Substance: ALFACALCIDOL
     Indication: OSTEOPOROSIS
     Route: 048
     Dates: start: 20120901
  18. POLAPREZINC [Concomitant]
     Active Substance: POLAPREZINC
     Indication: PROPHYLAXIS
     Route: 048
     Dates: start: 20110808
  19. ARASENA-A [Concomitant]
     Active Substance: VIDARABINE
     Indication: ORAL HERPES
     Dosage: OPTIMAL DOSE
     Route: 061
     Dates: start: 20170611

REACTIONS (1)
  - Gastritis [Recovered/Resolved]

NARRATIVE: CASE EVENT DATE: 20180401
